FAERS Safety Report 5069749-4 (Version None)
Quarter: 2006Q3

REPORT INFORMATION
  Report Type: 
  Country: None (occurrence: None)
  Receive Date: 20060803
  Receipt Date: 20031230
  Transmission Date: 20061208
  Serious: Yes (Other)
  Sender: FDA-Public Use
  Company Number: US-GLAXOSMITHKLINE-A0490912A

PATIENT
  Age: 58 Year
  Sex: Female

DRUGS (7)
  1. SEREVENT [Suspect]
     Indication: ASTHMA
     Dosage: 1PUFF TWICE PER DAY
     Route: 055
     Dates: start: 20030101
  2. FLOVENT [Suspect]
     Indication: ASTHMA
     Dosage: 2PUFF TWICE PER DAY
     Route: 055
     Dates: start: 20060320, end: 20060321
  3. FLOVENT [Concomitant]
     Route: 055
  4. ALBUTEROL SPIROS [Concomitant]
  5. SYNTHROID [Concomitant]
  6. PRILOSEC [Concomitant]
  7. NASONEX [Concomitant]

REACTIONS (20)
  - ARTHRALGIA [None]
  - COUGH [None]
  - DRUG INEFFECTIVE [None]
  - DRY THROAT [None]
  - DYSPHAGIA [None]
  - EYE PAIN [None]
  - FATIGUE [None]
  - HYPERHIDROSIS [None]
  - INSOMNIA [None]
  - MALAISE [None]
  - MUSCULOSKELETAL STIFFNESS [None]
  - MYALGIA [None]
  - OCULAR HYPERAEMIA [None]
  - PAIN [None]
  - POOR QUALITY DRUG ADMINISTERED [None]
  - PURULENT DISCHARGE [None]
  - SOMNOLENCE [None]
  - STRIDOR [None]
  - THROAT IRRITATION [None]
  - THROAT TIGHTNESS [None]
